FAERS Safety Report 9989601 (Version 1)
Quarter: 2014Q1

REPORT INFORMATION
  Report Type: Report from Study
  Country: US (occurrence: US)
  Receive Date: 20140310
  Receipt Date: 20140310
  Transmission Date: 20141002
  Serious: No
  Sender: FDA-Public Use
  Company Number: US-ABBVIE-13P-163-1135877-00

PATIENT
  Age: 24 Year
  Sex: Female

DRUGS (4)
  1. HUMIRA [Suspect]
     Indication: CROHN^S DISEASE
     Dates: start: 20130528
  2. NUVARING [Concomitant]
     Indication: CONTRACEPTION
  3. DESMOPRESSIN [Concomitant]
     Indication: DIABETES INSIPIDUS
  4. SYNTHROID [Concomitant]
     Indication: HYPOTHYROIDISM

REACTIONS (2)
  - Injection site papule [Recovering/Resolving]
  - Injection site erythema [Recovering/Resolving]
